FAERS Safety Report 12156340 (Version 1)
Quarter: 2016Q1

REPORT INFORMATION
  Report Type: Spontaneous
  Country: JP (occurrence: JP)
  Receive Date: 20160307
  Receipt Date: 20160307
  Transmission Date: 20160526
  Serious: Yes (Death, Hospitalization, Other)
  Sender: FDA-Public Use
  Company Number: JP-ELI_LILLY_AND_COMPANY-JP201602007100

PATIENT
  Age: 67 Year
  Sex: Male

DRUGS (2)
  1. PACLITAXEL. [Concomitant]
     Active Substance: PACLITAXEL
     Indication: GASTRIC CANCER
     Dosage: 66 DF, OTHER
     Route: 042
     Dates: start: 20151209, end: 20160113
  2. CYRAMZA [Suspect]
     Active Substance: RAMUCIRUMAB
     Indication: GASTRIC CANCER
     Dosage: 500 DF, OTHER
     Route: 042
     Dates: start: 20151028, end: 20160106

REACTIONS (4)
  - Peritonitis [Fatal]
  - Malaise [Unknown]
  - Tumour haemorrhage [Unknown]
  - Neutropenia [Unknown]

NARRATIVE: CASE EVENT DATE: 20160118
